FAERS Safety Report 7668125-5 (Version None)
Quarter: 2011Q3

REPORT INFORMATION
  Report Type: 
  Country: None (occurrence: None)
  Receive Date: 20110808
  Receipt Date: 20110727
  Transmission Date: 20111222
  Serious: No
  Sender: FDA-Public Use
  Company Number: US-JNJFOC-20110800656

PATIENT
  Sex: Female
  Weight: 58.97 kg

DRUGS (6)
  1. FENTANYL [Suspect]
     Indication: PAIN
     Route: 062
     Dates: start: 20110401
  2. PLAVIX [Concomitant]
     Route: 065
  3. UNKNOWN MEDICATION [Concomitant]
     Indication: BLOOD CHOLESTEROL
     Route: 065
  4. UNKNOWN MEDICATION [Concomitant]
     Route: 065
  5. BABY ASPRIN [Concomitant]
     Route: 048
  6. UNKNOWN MEDICATION [Concomitant]
     Indication: BLOOD PRESSURE
     Route: 065

REACTIONS (3)
  - PRODUCT QUALITY ISSUE [None]
  - DRUG ADMINISTERED AT INAPPROPRIATE SITE [None]
  - DERMATITIS CONTACT [None]
